FAERS Safety Report 24560848 (Version 3)
Quarter: 2025Q1

REPORT INFORMATION
  Report Type: Spontaneous
  Country: US (occurrence: US)
  Receive Date: 20241029
  Receipt Date: 20250225
  Transmission Date: 20250408
  Serious: Yes (Other)
  Sender: PFIZER
  Company Number: US-PFIZER INC-2021229452

PATIENT
  Age: 79 Year
  Sex: Female

DRUGS (5)
  1. IBRANCE [Suspect]
     Active Substance: PALBOCICLIB
     Indication: Breast cancer female
     Route: 048
     Dates: start: 20180302
  2. IBRANCE [Suspect]
     Active Substance: PALBOCICLIB
     Route: 048
     Dates: start: 20220301, end: 20230502
  3. IBRANCE [Suspect]
     Active Substance: PALBOCICLIB
     Dosage: 75 MG, ONE TABLET DAILY ON DAYS 1-21 EVERY 28 DAYS
     Route: 048
     Dates: start: 20230530
  4. IBRANCE [Suspect]
     Active Substance: PALBOCICLIB
  5. FASLODEX [Concomitant]
     Active Substance: FULVESTRANT

REACTIONS (4)
  - Chronic kidney disease [Unknown]
  - Cytopenia [Unknown]
  - Anaemia [Unknown]
  - Product dose omission issue [Unknown]

NARRATIVE: CASE EVENT DATE: 20220301
